FAERS Safety Report 23819021 (Version 3)
Quarter: 2024Q2

REPORT INFORMATION
  Report Type: Spontaneous
  Country: US (occurrence: None)
  Receive Date: 20240506
  Receipt Date: 20240606
  Transmission Date: 20240716
  Serious: No
  Sender: FDA-Public Use
  Company Number: 2024A095928

PATIENT
  Sex: Male

DRUGS (1)
  1. SYMBICORT [Suspect]
     Active Substance: BUDESONIDE\FORMOTEROL FUMARATE DIHYDRATE
     Indication: Pulmonary congestion
     Dosage: 160/4.5 MCG 120 INHALATIONSL, TWO TIMES A DAY
     Route: 055

REACTIONS (6)
  - Dyspnoea [Unknown]
  - Cough [Unknown]
  - Device use issue [Unknown]
  - Incorrect dose administered by device [Unknown]
  - Insurance issue [Unknown]
  - Device delivery system issue [Unknown]
